FAERS Safety Report 6918104-8 (Version None)
Quarter: 2010Q3

REPORT INFORMATION
  Report Type: 
  Country: None (occurrence: None)
  Receive Date: 20100806
  Receipt Date: 20100722
  Transmission Date: 20110219
  Serious: Yes (Hospitalization)
  Sender: FDA-Public Use
  Company Number: VAL_00442_2010

PATIENT
  Age: 87 Year
  Sex: Female

DRUGS (10)
  1. ROCALTROL [Suspect]
     Indication: RENAL FAILURE CHRONIC
     Dosage: (0.5 MG ORAL)
     Route: 048
     Dates: start: 20091119, end: 20100420
  2. MASTICAL (MASTICAL-CALCIUM CARBONATE) (NOT SPECIFIED) [Suspect]
     Indication: RENAL FAILURE CHRONIC
     Dosage: (DF)
     Dates: start: 20091119, end: 20100420
  3. SIMVASTATIN [Concomitant]
  4. ARANESP [Concomitant]
  5. DERMATRANS /00003201/ [Concomitant]
  6. DIOVAN [Concomitant]
  7. EUTIROX [Concomitant]
  8. LOBIVON [Concomitant]
  9. SEGURIL [Concomitant]
  10. SINTROM [Concomitant]

REACTIONS (3)
  - CONFUSIONAL STATE [None]
  - DRUG INTERACTION [None]
  - HYPERCALCAEMIA [None]
